FAERS Safety Report 21532343 (Version 1)
Quarter: 2022Q4

REPORT INFORMATION
  Report Type: Spontaneous
  Country: FR (occurrence: FR)
  Receive Date: 20221101
  Receipt Date: 20221101
  Transmission Date: 20230113
  Serious: Yes (Other)
  Sender: FDA-Public Use
  Company Number: None

PATIENT
  Age: 70 Year
  Sex: Male
  Weight: 77 kg

DRUGS (3)
  1. VOTRIENT [Suspect]
     Active Substance: PAZOPANIB HYDROCHLORIDE
     Indication: Sarcoma
     Dosage: 800 MG, QD
     Route: 048
     Dates: start: 20220613, end: 20220628
  2. NEBIVOLOL [Concomitant]
     Active Substance: NEBIVOLOL
     Indication: Product used for unknown indication
     Dosage: UNK (5MG. AU LONG COURS)
     Route: 048
  3. IRBESARTAN [Concomitant]
     Active Substance: IRBESARTAN
     Indication: Product used for unknown indication
     Dosage: UNK (150MG. AU LONG COURS)
     Route: 065

REACTIONS (1)
  - Mixed liver injury [Not Recovered/Not Resolved]

NARRATIVE: CASE EVENT DATE: 20220628
